FAERS Safety Report 20238710 (Version 1)
Quarter: 2021Q4

REPORT INFORMATION
  Report Type: Spontaneous
  Country: IT (occurrence: IT)
  Receive Date: 20211228
  Receipt Date: 20211228
  Transmission Date: 20220303
  Serious: Yes (Hospitalization, Other)
  Sender: FDA-Public Use
  Company Number: IT-009507513-2112ITA008977

PATIENT
  Age: 59 Year
  Sex: Male
  Weight: 66 kg

DRUGS (1)
  1. PEMBROLIZUMAB [Suspect]
     Active Substance: PEMBROLIZUMAB
     Indication: Squamous cell carcinoma
     Dosage: 200 MILLIGRAM/KILOGRAM, Q3W
     Dates: start: 202012, end: 2021

REACTIONS (9)
  - Apnoea [Unknown]
  - Dysphagia [Recovering/Resolving]
  - Headache [Unknown]
  - Malignant neoplasm progression [Recovered/Resolved]
  - Laryngospasm [Recovered/Resolved]
  - Immune-mediated enterocolitis [Recovering/Resolving]
  - Tumour pseudoprogression [Recovered/Resolved]
  - Herpes zoster [Unknown]
  - Oedema [Unknown]

NARRATIVE: CASE EVENT DATE: 20210101
